FAERS Safety Report 16159575 (Version 4)
Quarter: 2019Q2

REPORT INFORMATION
  Report Type: Spontaneous
  Country: US (occurrence: US)
  Receive Date: 20190404
  Receipt Date: 20190429
  Transmission Date: 20190711
  Serious: Yes (Other)
  Sender: FDA-Public Use
  Company Number: US-SA-2019SA089453

PATIENT
  Age: 59 Year
  Sex: Female

DRUGS (1)
  1. PRALUENT [Suspect]
     Active Substance: ALIROCUMAB
     Indication: HYPERCHOLESTEROLAEMIA
     Dosage: 150 MG, QOW
     Route: 058
     Dates: start: 20190315, end: 20190329

REACTIONS (14)
  - Cardiac flutter [Unknown]
  - Paraesthesia [Unknown]
  - Dysphonia [Unknown]
  - Chest pain [Unknown]
  - Chest discomfort [Unknown]
  - Pain [Unknown]
  - Breast tenderness [Unknown]
  - Nausea [Unknown]
  - Dry throat [Unknown]
  - Anxiety [Unknown]
  - Breast swelling [Unknown]
  - Insomnia [Unknown]
  - Malaise [Unknown]
  - Injection site pain [Unknown]

NARRATIVE: CASE EVENT DATE: 2019
